FAERS Safety Report 8384072-8 (Version None)
Quarter: 2012Q2

REPORT INFORMATION
  Report Type: 
  Country: None (occurrence: None)
  Receive Date: 20120524
  Receipt Date: 20120515
  Transmission Date: 20120825
  Serious: Yes (Hospitalization)
  Sender: FDA-Public Use
  Company Number: JP-EISAI INC-E7389-01506-CLI-JP

PATIENT
  Sex: Female
  Weight: 40 kg

DRUGS (21)
  1. HALAVEN [Suspect]
     Indication: METASTASES TO LIVER
  2. FUROSEMIDE [Concomitant]
  3. CELESTAMINE TAB [Concomitant]
     Indication: PROPHYLAXIS
     Route: 048
  4. HALAVEN [Suspect]
     Indication: BREAST CANCER RECURRENT
     Route: 041
     Dates: start: 20110804
  5. FAMOTIDINE [Concomitant]
     Indication: PROPHYLAXIS
  6. LANSOPRAZOLE [Concomitant]
     Indication: PROPHYLAXIS
     Route: 048
  7. PHENYTOIN SODIUM CAP [Concomitant]
     Indication: PROPHYLAXIS
     Route: 048
  8. ELIETEN [Concomitant]
     Indication: PROPHYLAXIS
     Route: 048
  9. AZUNOL [Concomitant]
     Indication: PROPHYLAXIS
  10. DECADRON [Concomitant]
     Indication: PROPHYLAXIS
  11. GLYCEOL [Concomitant]
  12. MEDROXYPROGESTERONE ACETATE [Concomitant]
     Indication: BREAST CANCER RECURRENT
     Dates: start: 20100603
  13. PACIF [Concomitant]
     Route: 048
  14. HALAVEN [Suspect]
     Indication: METASTASES TO LUNG
  15. GRANISETRON [Concomitant]
     Indication: PROPHYLAXIS
  16. HALAVEN [Suspect]
  17. MEDROXYPROGESTERONE ACETATE [Concomitant]
  18. ZOMETA [Concomitant]
     Indication: METASTASES TO BONE
  19. PRECOAT [Concomitant]
     Route: 048
  20. HALAVEN [Suspect]
     Indication: METASTASES TO BONE
  21. NEOPHAGEN [Concomitant]
     Indication: PROPHYLAXIS

REACTIONS (3)
  - LEUKOPENIA [None]
  - PNEUMONIA [None]
  - NEUTROPENIA [None]
